FAERS Safety Report 21890994 (Version 1)
Quarter: 2023Q1

REPORT INFORMATION
  Report Type: Spontaneous
  Country: US (occurrence: US)
  Receive Date: 20230120
  Receipt Date: 20230120
  Transmission Date: 20230418
  Serious: Yes (Death)
  Sender: FDA-Public Use
  Company Number: US-PFIZER INC-PV202300009451

PATIENT
  Age: 42 Year
  Sex: Male

DRUGS (9)
  1. ERYTHROMYCIN [Suspect]
     Active Substance: ERYTHROMYCIN
     Indication: Malacoplakia
     Dosage: UNK
  2. ERYTHROMYCIN [Suspect]
     Active Substance: ERYTHROMYCIN
     Indication: Antibiotic therapy
  3. ERYTHROMYCIN [Suspect]
     Active Substance: ERYTHROMYCIN
     Indication: Nodule
  4. AMPICILLIN [Suspect]
     Active Substance: AMPICILLIN
     Indication: Malacoplakia
     Dosage: UNK
     Dates: start: 1978, end: 197812
  5. AMPICILLIN [Suspect]
     Active Substance: AMPICILLIN
     Indication: Nodule
  6. AMPHOTERICIN B [Suspect]
     Active Substance: AMPHOTERICIN B
     Indication: Malacoplakia
     Dosage: UNK
  7. AMPHOTERICIN B [Suspect]
     Active Substance: AMPHOTERICIN B
     Indication: Cryptococcosis
  8. FLUCYTOSINE [Suspect]
     Active Substance: FLUCYTOSINE
     Indication: Malacoplakia
     Dosage: UNK
  9. FLUCYTOSINE [Suspect]
     Active Substance: FLUCYTOSINE
     Indication: Cryptococcosis

REACTIONS (1)
  - Drug ineffective [Fatal]
